FAERS Safety Report 10973862 (Version 1)
Quarter: 2015Q1

REPORT INFORMATION
  Report Type: Spontaneous
  Country: US (occurrence: None)
  Receive Date: 20150331
  Receipt Date: 20150331
  Transmission Date: 20150721
  Serious: No
  Sender: FDA-Public Use
  Company Number: None

PATIENT
  Age: 64 Year
  Sex: Female
  Weight: 96.16 kg

DRUGS (14)
  1. SUBLINGUAL B12 [Concomitant]
  2. VIT A [Concomitant]
  3. VITAMIN B6 [Concomitant]
     Active Substance: PYRIDOXINE HYDROCHLORIDE
  4. NASACORT [Concomitant]
     Active Substance: TRIAMCINOLONE ACETONIDE
  5. LEVOTHYROXINE [Concomitant]
     Active Substance: LEVOTHYROXINE
  6. OMEGA-3 ACIDS [Concomitant]
     Active Substance: OMEGA-3 FATTY ACIDS
  7. CELECOXIB 200MG [Suspect]
     Active Substance: CELECOXIB
     Indication: BACK DISORDER
     Dosage: 1 CAPSULE
     Route: 048
     Dates: start: 20150202, end: 20150330
  8. GABAPENTIN. [Concomitant]
     Active Substance: GABAPENTIN
  9. VITAMIN D [Concomitant]
     Active Substance: CHOLECALCIFEROL
  10. VITAMIN E [Concomitant]
     Active Substance: .ALPHA.-TOCOPHEROL
  11. BROMELAIN [Concomitant]
     Active Substance: BROMELAINS
  12. VITAMIN C [Concomitant]
     Active Substance: ASCORBIC ACID
  13. BIOTIN [Concomitant]
     Active Substance: BIOTIN
  14. CELECOXIB 200MG [Suspect]
     Active Substance: CELECOXIB
     Indication: ARTHROPATHY
     Dosage: 1 CAPSULE
     Route: 048
     Dates: start: 20150202, end: 20150330

REACTIONS (2)
  - Drug effect decreased [None]
  - Product substitution issue [None]

NARRATIVE: CASE EVENT DATE: 20150202
